FAERS Safety Report 25230105 (Version 1)
Quarter: 2025Q2

REPORT INFORMATION
  Report Type: Report from Study
  Country: AE (occurrence: AE)
  Receive Date: 20250423
  Receipt Date: 20250423
  Transmission Date: 20250716
  Serious: Yes (Death, Hospitalization)
  Sender: GILEAD
  Company Number: AE-GSK-AE2025EME046859

PATIENT
  Age: 39 Year
  Sex: Female

DRUGS (1)
  1. AMBRISENTAN [Suspect]
     Active Substance: AMBRISENTAN
     Indication: Pulmonary arterial hypertension
     Dosage: 10 MG, QD
     Route: 065
     Dates: start: 20220705, end: 20241206

REACTIONS (2)
  - Oxygen saturation decreased [Fatal]
  - Haemoptysis [Fatal]

NARRATIVE: CASE EVENT DATE: 20250315
